FAERS Safety Report 7716077-1 (Version None)
Quarter: 2011Q3

REPORT INFORMATION
  Report Type: 
  Country: None (occurrence: None)
  Receive Date: 20110829
  Receipt Date: 20110819
  Transmission Date: 20111222
  Serious: Yes (Death, Hospitalization)
  Sender: FDA-Public Use
  Company Number: US-GLAXOSMITHKLINE-A0923072A

PATIENT
  Sex: Male

DRUGS (3)
  1. PROMACTA [Suspect]
     Indication: IDIOPATHIC THROMBOCYTOPENIC PURPURA
  2. ROMIPLOSTIM [Concomitant]
  3. CORTICOSTEROIDS [Concomitant]

REACTIONS (2)
  - DEATH [None]
  - ADVERSE EVENT [None]
